FAERS Safety Report 7763130-2 (Version None)
Quarter: 2011Q3

REPORT INFORMATION
  Report Type: 
  Country: None (occurrence: None)
  Receive Date: 20110920
  Receipt Date: 20110920
  Transmission Date: 20111222
  Serious: Yes (Other)
  Sender: FDA-Public Use
  Company Number: US-PFIZER INC-2010098009

PATIENT
  Sex: Male

DRUGS (12)
  1. HEPARIN SODIUM [Suspect]
     Indication: ARTERIAL STENT INSERTION
  2. ASPIRIN [Concomitant]
  3. COREG [Concomitant]
  4. HEPARIN SODIUM [Suspect]
     Indication: PERIPHERAL ARTERY ANGIOPLASTY
  5. FOSINOPRIL [Concomitant]
  6. NIFEDIPINE [Concomitant]
  7. HEPARIN SODIUM [Suspect]
     Indication: AORTOGRAM
     Dosage: 10000
     Route: 065
     Dates: start: 20071101, end: 20071101
  8. HEPARIN SODIUM [Suspect]
     Indication: CONTINUOUS HAEMODIAFILTRATION
  9. DIGOXIN [Concomitant]
  10. PLAVIX [Concomitant]
  11. ARGATROBAN [Suspect]
     Indication: CONTINUOUS HAEMODIAFILTRATION
     Dosage: 10.4 ML, EVERY HR
     Route: 042
     Dates: start: 20071102, end: 20071104
  12. NAPROXEN [Concomitant]

REACTIONS (20)
  - PYREXIA [None]
  - ATRIAL FIBRILLATION [None]
  - PULMONARY OEDEMA [None]
  - ANAEMIA [None]
  - SEPTIC SHOCK [None]
  - CONTINUOUS HAEMODIAFILTRATION [None]
  - RESPIRATORY ARREST [None]
  - MYOCARDIAL INFARCTION [None]
  - RENAL FAILURE ACUTE [None]
  - CARDIAC FAILURE CONGESTIVE [None]
  - PNEUMONIA [None]
  - MULTI-ORGAN FAILURE [None]
  - CARDIAC ARREST [None]
  - THROMBOCYTOPENIA [None]
  - UNRESPONSIVE TO STIMULI [None]
  - RESPIRATORY FAILURE [None]
  - METABOLIC ACIDOSIS [None]
  - CARDIOGENIC SHOCK [None]
  - CATHETER SITE HAEMORRHAGE [None]
  - VASCULAR PSEUDOANEURYSM [None]
